FAERS Safety Report 14803951 (Version 1)
Quarter: 2018Q2

REPORT INFORMATION
  Report Type: Spontaneous
  Country: US (occurrence: US)
  Receive Date: 20180425
  Receipt Date: 20180425
  Transmission Date: 20180711
  Serious: Yes (Other)
  Sender: FDA-Public Use
  Company Number: US-ASTELLAS-2018US018966

PATIENT
  Age: 55 Year
  Sex: Male

DRUGS (1)
  1. TACROLIMUS. [Suspect]
     Active Substance: TACROLIMUS
     Indication: LIVER TRANSPLANT
     Dosage: UNK UNK, UNKNOWN FREQ.
     Route: 065

REACTIONS (8)
  - Hepatic arteriovenous malformation [Unknown]
  - Hyperkalaemia [Unknown]
  - Cardiac failure [Recovering/Resolving]
  - Blood creatinine increased [Unknown]
  - Pulmonary embolism [Unknown]
  - Immunosuppressant drug level increased [Unknown]
  - Pulmonary hypertension [Unknown]
  - Inferior vena cava dilatation [Unknown]
